FAERS Safety Report 22955293 (Version 2)
Quarter: 2024Q4

REPORT INFORMATION
  Report Type: Report from Study
  Country: CA (occurrence: CA)
  Receive Date: 20230918
  Receipt Date: 20241008
  Transmission Date: 20250115
  Serious: Yes (Other)
  Sender: SANDOZ
  Company Number: CA-SANDOZ-SDZ2023CA029222

PATIENT
  Sex: Male

DRUGS (1)
  1. HYRIMOZ [Suspect]
     Active Substance: ADALIMUMAB-ADAZ
     Indication: Ankylosing spondylitis
     Dosage: 40 MG Q. 2 WEEKS;BIWEEKLY
     Route: 058
     Dates: start: 20220308

REACTIONS (3)
  - Ankylosing spondylitis [Unknown]
  - Pain in extremity [Recovered/Resolved]
  - Weight increased [Unknown]
